FAERS Safety Report 7211665-3 (Version None)
Quarter: 2011Q1

REPORT INFORMATION
  Report Type: 
  Country: None (occurrence: None)
  Receive Date: 20110105
  Receipt Date: 20101206
  Transmission Date: 20110831
  Serious: No
  Sender: FDA-Public Use
  Company Number: US-BAYER-2011-000551

PATIENT
  Sex: Male
  Weight: 69 kg

DRUGS (3)
  1. BENADRYL [Concomitant]
  2. ASPIRIN [Concomitant]
  3. ALEVE (CAPLET) [Suspect]
     Indication: FIBROMYALGIA
     Dosage: 4 DF, WITH FOOD
     Route: 048

REACTIONS (1)
  - THERAPEUTIC RESPONSE UNEXPECTED [None]
